FAERS Safety Report 4398973-9 (Version None)
Quarter: 2004Q3

REPORT INFORMATION
  Report Type: 
  Country: None (occurrence: None)
  Receive Date: 20040712
  Receipt Date: 20040629
  Transmission Date: 20050211
  Serious: Yes (Hospitalization)
  Sender: FDA-Public Use
  Company Number: US-JNJFOC-20040700090

PATIENT
  Age: 42 Year
  Sex: Female

DRUGS (7)
  1. INFLIXIMAB LYOPHILIZED POWDER (INFLIXIMAB, RECOMBINANT) [Suspect]
     Indication: RHEUMATOID ARTHRITIS
     Dosage: INTRAVENOUS
     Route: 042
     Dates: start: 20010514, end: 20040101
  2. CELEBREX [Concomitant]
  3. PREDNISONE [Concomitant]
  4. FOLIC ACID [Concomitant]
  5. LORTAB [Concomitant]
  6. METHOTREXATE SODIUM [Concomitant]
  7. CALCIUM D (CALCIUM WITH VITAMIN D) [Concomitant]

REACTIONS (4)
  - CHEST PAIN [None]
  - LUNG INFILTRATION [None]
  - PLEURAL EFFUSION [None]
  - WHITE BLOOD CELL COUNT INCREASED [None]
